FAERS Safety Report 7607339-7 (Version None)
Quarter: 2011Q3

REPORT INFORMATION
  Report Type: 
  Country: None (occurrence: None)
  Receive Date: 20110712
  Receipt Date: 20110712
  Transmission Date: 20111222
  Serious: Yes (Hospitalization)
  Sender: FDA-Public Use
  Company Number: None

PATIENT
  Age: 73 Year
  Sex: Male
  Weight: 87 kg

DRUGS (4)
  1. AZITHROMYCIN [Suspect]
     Dosage: 500MG OTHER PO
     Route: 048
     Dates: start: 20110517, end: 20110518
  2. WARFARIN SODIUM [Suspect]
     Indication: HAEMOGLOBIN
     Dosage: 2.5MG OTHER PO
     Route: 048
     Dates: start: 20040416
  3. WARFARIN SODIUM [Suspect]
     Indication: HAEMATOCRIT
     Dosage: 2.5MG OTHER PO
     Route: 048
     Dates: start: 20040416
  4. WARFARIN SODIUM [Suspect]
     Indication: INTERNATIONAL NORMALISED RATIO
     Dosage: 2.5MG OTHER PO
     Route: 048
     Dates: start: 20040416

REACTIONS (3)
  - ANAEMIA [None]
  - DYSPNOEA [None]
  - MELAENA [None]
